FAERS Safety Report 9103149 (Version 1)
Quarter: 2013Q1

REPORT INFORMATION
  Report Type: Spontaneous
  Country: PL (occurrence: PL)
  Receive Date: 20130218
  Receipt Date: 20130218
  Transmission Date: 20140127
  Serious: Yes (Hospitalization)
  Sender: FDA-Public Use
  Company Number: PL-ABBOTT-13P-129-1050838-00

PATIENT
  Age: 53 Year
  Sex: Male

DRUGS (3)
  1. CICLOSPORIN [Suspect]
     Indication: BENIGN FAMILIAL PEMPHIGUS
  2. IBUPROFEN [Suspect]
     Indication: PRODUCT USED FOR UNKNOWN INDICATION
  3. ISOTRETINOIN [Suspect]
     Indication: BENIGN FAMILIAL PEMPHIGUS
     Dates: start: 2006

REACTIONS (8)
  - Benign familial pemphigus [Recovering/Resolving]
  - Hypertension [Unknown]
  - Dermatitis allergic [Unknown]
  - Hepatic function abnormal [Recovering/Resolving]
  - Hepatic enzyme increased [Recovered/Resolved]
  - Blood cholesterol increased [Not Recovered/Not Resolved]
  - Blood bilirubin increased [Recovered/Resolved]
  - Blood triglycerides increased [Not Recovered/Not Resolved]
